FAERS Safety Report 8102669-7 (Version None)
Quarter: 2012Q1

REPORT INFORMATION
  Report Type: 
  Country: None (occurrence: None)
  Receive Date: 20120201
  Receipt Date: 20120123
  Transmission Date: 20120608
  Serious: Yes (Other)
  Sender: FDA-Public Use
  Company Number: US-BAYER-2011-095648

PATIENT
  Age: 50 Year
  Sex: Female
  Weight: 72.562 kg

DRUGS (5)
  1. YAZ [Suspect]
     Indication: OVULATION PAIN
  2. YAZ [Suspect]
  3. YAZ [Suspect]
     Indication: GENITAL HAEMORRHAGE
  4. YAZ [Suspect]
     Indication: ENDOMETRIOSIS
     Dosage: UNK
     Route: 048
     Dates: start: 20061201, end: 20080221
  5. YAZ [Suspect]
     Indication: PREMENSTRUAL SYNDROME

REACTIONS (7)
  - PAIN [None]
  - DEEP VEIN THROMBOSIS [None]
  - INJURY [None]
  - PAIN IN EXTREMITY [None]
  - EMOTIONAL DISTRESS [None]
  - OEDEMA PERIPHERAL [None]
  - GAIT DISTURBANCE [None]
